FAERS Safety Report 24915267 (Version 1)
Quarter: 2025Q1

REPORT INFORMATION
  Report Type: Spontaneous
  Country: IN (occurrence: IN)
  Receive Date: 20250203
  Receipt Date: 20250203
  Transmission Date: 20250409
  Serious: Yes (Death)
  Sender: ROCHE
  Company Number: IN-ROCHE-10000108335

PATIENT
  Age: 83 Year
  Sex: Female
  Weight: 46 kg

DRUGS (1)
  1. POLIVY [Suspect]
     Active Substance: POLATUZUMAB VEDOTIN-PIIQ
     Indication: Diffuse large B-cell lymphoma recurrent
     Route: 040
     Dates: start: 20240911

REACTIONS (7)
  - Off label use [Unknown]
  - Off label use [Unknown]
  - Performance status decreased [Unknown]
  - Asthenia [Unknown]
  - Hypervolaemia [Unknown]
  - Blood creatinine increased [Unknown]
  - Disease complication [Fatal]

NARRATIVE: CASE EVENT DATE: 20250118
